FAERS Safety Report 9742568 (Version 2)
Quarter: 2015Q3

REPORT INFORMATION
  Report Type: Spontaneous
  Country: US (occurrence: US)
  Receive Date: 20131210
  Receipt Date: 20150804
  Transmission Date: 20151125
  Serious: No
  Sender: FDA-Public Use
  Company Number: US-GILEAD-2009-0024280

PATIENT
  Age: 73 Year
  Sex: Male
  Weight: 86.18 kg

DRUGS (14)
  1. OXYGEN. [Concomitant]
     Active Substance: OXYGEN
  2. OMEPRAZOLE. [Concomitant]
     Active Substance: OMEPRAZOLE
  3. LETAIRIS [Suspect]
     Active Substance: AMBRISENTAN
     Indication: PULMONARY ARTERIAL HYPERTENSION
     Route: 048
     Dates: start: 20080911
  4. NORVASC [Concomitant]
     Active Substance: AMLODIPINE BESYLATE
  5. IPRATROPIUM BROMIDE/SALBUTAMOL SULFATE [Concomitant]
  6. AFRIN SALINE NASAL SPRAY [Concomitant]
  7. SIMVASTATIN. [Concomitant]
     Active Substance: SIMVASTATIN
  8. ASPIRIN. [Concomitant]
     Active Substance: ASPIRIN
  9. WARFARIN [Concomitant]
     Active Substance: WARFARIN
  10. ALTACE [Concomitant]
     Active Substance: RAMIPRIL
  11. CEFUROXIME AXETIL. [Concomitant]
     Active Substance: CEFUROXIME AXETIL
  12. VITAMIN B12 [Concomitant]
     Active Substance: CYANOCOBALAMIN
  13. ATENOLOL. [Concomitant]
     Active Substance: ATENOLOL
  14. ACTOS [Concomitant]
     Active Substance: PIOGLITAZONE HYDROCHLORIDE

REACTIONS (1)
  - Sinus congestion [Unknown]
